FAERS Safety Report 6872066-0 (Version None)
Quarter: 2010Q3

REPORT INFORMATION
  Report Type: 
  Country: None (occurrence: None)
  Receive Date: 20100723
  Receipt Date: 20100713
  Transmission Date: 20110219
  Serious: Yes (Death, Hospitalization)
  Sender: FDA-Public Use
  Company Number: HK-PFIZER INC-2008154961

PATIENT
  Age: 47 Year
  Sex: Female

DRUGS (4)
  1. SUNITINIB MALATE [Suspect]
     Indication: BREAST CANCER
     Dosage: 37.5 MG, 1X/DAY
     Route: 048
     Dates: start: 20080418, end: 20080520
  2. SUNITINIB MALATE [Suspect]
     Dosage: 25 MG, 1X/DAY
     Dates: start: 20080521, end: 20080619
  3. SUNITINIB MALATE [Suspect]
     Dosage: 37.5 MG, 1X/DAY
     Dates: start: 20080620, end: 20080708
  4. SUNITINIB MALATE [Suspect]
     Dosage: 37.5 MG, 1X/DAY
     Dates: start: 20080728, end: 20080820

REACTIONS (2)
  - BREAST CANCER [None]
  - DISEASE PROGRESSION [None]
